FAERS Safety Report 9705159 (Version 3)
Quarter: 2014Q3

REPORT INFORMATION
  Report Type: Spontaneous
  Country: US (occurrence: US)
  Receive Date: 20131122
  Receipt Date: 20140709
  Transmission Date: 20150326
  Serious: Yes (Life-Threatening, Hospitalization)
  Sender: FDA-Public Use
  Company Number: US-BAYER-2013-139739

PATIENT
  Age: 44 Year
  Sex: Female
  Weight: 63.49 kg

DRUGS (4)
  1. NEURONTIN [Concomitant]
     Active Substance: GABAPENTIN
     Dosage: UNK
     Dates: start: 2004
  2. PERCOCET [Concomitant]
     Active Substance: ACETAMINOPHEN\OXYCODONE HYDROCHLORIDE
     Dosage: UNK
     Dates: start: 2004
  3. MIRENA [Suspect]
     Active Substance: LEVONORGESTREL
     Indication: CONTRACEPTION
     Dosage: 20 MCG/24HR, CONT
     Route: 015
     Dates: start: 20090529, end: 20130821
  4. VICODIN [Concomitant]
     Active Substance: ACETAMINOPHEN\HYDROCODONE BITARTRATE
     Dosage: UNK
     Dates: start: 2004

REACTIONS (14)
  - Anxiety [None]
  - Dyspareunia [None]
  - Embedded device [None]
  - Medical device complication [None]
  - Injury [None]
  - Dysmenorrhoea [None]
  - Abdominal pain lower [None]
  - General physical health deterioration [None]
  - Anhedonia [None]
  - Device difficult to use [None]
  - Device defective [None]
  - Emotional distress [None]
  - Device dislocation [None]
  - Pelvic pain [None]

NARRATIVE: CASE EVENT DATE: 201210
